FAERS Safety Report 7565652-6 (Version None)
Quarter: 2011Q2

REPORT INFORMATION
  Report Type: 
  Country: None (occurrence: None)
  Receive Date: 20110616
  Receipt Date: 20110506
  Transmission Date: 20111010
  Serious: Yes (Other)
  Sender: FDA-Public Use
  Company Number: AUR-APU-2011-01588

PATIENT
  Age: 41 Year
  Sex: Female

DRUGS (2)
  1. PAROXETINE HCL [Suspect]
     Indication: DEPRESSION
     Dosage: 10MG, DAILY
  2. PAROXETINE HCL [Suspect]
     Indication: DEPRESSION
     Dosage: 20MG, DAILY;
     Dates: start: 20110201

REACTIONS (6)
  - DISORIENTATION [None]
  - CONFUSIONAL STATE [None]
  - FEELING ABNORMAL [None]
  - FEELING JITTERY [None]
  - PRODUCT QUALITY ISSUE [None]
  - TREMOR [None]
